FAERS Safety Report 6402394-4 (Version None)
Quarter: 2009Q4

REPORT INFORMATION
  Report Type: 
  Country: None (occurrence: None)
  Receive Date: 20091013
  Receipt Date: 20091005
  Transmission Date: 20100525
  Serious: Yes (Death, Congenital Anomaly, Other)
  Sender: FDA-Public Use
  Company Number: 2008US001483

PATIENT
  Sex: Female
  Weight: 1.8 kg

DRUGS (9)
  1. PROGRAF [Suspect]
     Indication: DRUG EXPOSURE DURING PREGNANCY
     Dosage: 5 MG, BID, ORAL
     Route: 048
  2. MYCOPHENOLATE MOFETIL [Suspect]
     Indication: DRUG EXPOSURE DURING PREGNANCY
     Dosage: 1000 MG, BID, UNK 500 MG, BID, UNK
  3. PREDNISONE TAB [Suspect]
     Indication: DRUG EXPOSURE DURING PREGNANCY
     Dosage: 2.5 MG, BID, ORAL 2.5 MG, UID/QD, ORAL
     Route: 048
  4. CELLCEPT [Suspect]
     Indication: DRUG EXPOSURE DURING PREGNANCY
     Dosage: 1000 MG, BID, ORAL 500 MG, BID, ORAL
     Route: 048
  5. PRENATAL VITAMINS (THIAMINE MONONITRATE, CALCIUM PANTOTHENATE, NICOTIN [Concomitant]
  6. FOLIC ACID [Concomitant]
  7. BACTRIM (SULFAMEETHOXAZOLE) [Concomitant]
  8. ACYCLOVIR [Concomitant]
  9. NYSTATIN [Concomitant]

REACTIONS (31)
  - BRAIN MALFORMATION [None]
  - CARDIOPULMONARY FAILURE [None]
  - CATARACT CONGENITAL [None]
  - CENTRAL NERVOUS SYSTEM NECROSIS [None]
  - CLEFT LIP [None]
  - CLEFT PALATE [None]
  - COLOBOMA [None]
  - CONGENITAL EYE DISORDER [None]
  - CONGENITAL MITRAL VALVE STENOSIS [None]
  - CORNEAL OPACITY CONGENITAL [None]
  - CORNEAL TRANSPLANT [None]
  - EXTERNAL AUDITORY CANAL ATRESIA [None]
  - FINGER DEFORMITY [None]
  - HEART DISEASE CONGENITAL [None]
  - HYPERTELORISM OF ORBIT [None]
  - INTESTINAL MALROTATION [None]
  - MATERNAL DRUGS AFFECTING FOETUS [None]
  - MICROPHTHALMOS [None]
  - MICROTIA [None]
  - MITRAL VALVE STENOSIS [None]
  - NEONATAL RESPIRATORY DISTRESS SYNDROME [None]
  - PATENT DUCTUS ARTERIOSUS [None]
  - PNEUMONIA [None]
  - POST PROCEDURAL CONSTIPATION [None]
  - PREMATURE BABY [None]
  - PULMONARY HYPERTENSIVE CRISIS [None]
  - PULMONARY VALVE STENOSIS CONGENITAL [None]
  - PULMONARY VASCULAR DISORDER [None]
  - RIB DEFORMITY [None]
  - SPINAL DEFORMITY [None]
  - STEAL SYNDROME [None]
